FAERS Safety Report 9751877 (Version 2)
Quarter: 2014Q2

REPORT INFORMATION
  Report Type: Spontaneous
  Country: US (occurrence: US)
  Receive Date: 20131213
  Receipt Date: 20140617
  Transmission Date: 20141212
  Serious: Yes (Other)
  Sender: FDA-Public Use
  Company Number: US-ROCHE-1318876

PATIENT
  Age: 12 Year
  Sex: Male

DRUGS (8)
  1. XOLAIR [Suspect]
     Indication: ASTHMA
     Route: 065
     Dates: start: 20131126
  2. ADVAIR [Concomitant]
     Indication: PRODUCT USED FOR UNKNOWN INDICATION
     Dosage: 250/50. 1 INHALATION 2X PER DAY
     Route: 055
     Dates: start: 20121112
  3. BENADRYL (UNITED STATES) [Concomitant]
     Dosage: 2 TABLETS DAILY
     Route: 065
     Dates: start: 20131112
  4. NASONEX [Concomitant]
     Route: 065
     Dates: start: 20131112
  5. PROAIR (UNITED STATES) [Concomitant]
     Dosage: 2 PUFFS EVERY 4 HOURS AS NEEDED
     Route: 065
  6. PREDNISONE [Concomitant]
     Route: 065
     Dates: start: 20131112
  7. ZANTAC [Concomitant]
     Route: 065
     Dates: start: 20131112
  8. RANITIDINE HCL [Concomitant]
     Route: 065

REACTIONS (5)
  - Urticaria [Unknown]
  - Dyspnoea [Unknown]
  - Urticaria [Unknown]
  - Pruritus [Unknown]
  - Wheezing [Unknown]
